FAERS Safety Report 8513724-1 (Version None)
Quarter: 2012Q3

REPORT INFORMATION
  Report Type: 
  Country: None (occurrence: None)
  Receive Date: 20120717
  Receipt Date: 20120712
  Transmission Date: 20120928
  Serious: Yes (Other)
  Sender: FDA-Public Use
  Company Number: US-AMGEN-USASP2012043399

PATIENT
  Age: 53 Year
  Sex: Female

DRUGS (1)
  1. ENBREL [Suspect]
     Indication: RHEUMATOID ARTHRITIS
     Dosage: 50 MG, QWK
     Dates: start: 20030227

REACTIONS (7)
  - SWELLING [None]
  - DENTAL CARIES [None]
  - DRY MOUTH [None]
  - ARTHROPOD BITE [None]
  - PAIN [None]
  - TOOTH FRACTURE [None]
  - ERYTHEMA [None]
